FAERS Safety Report 21799099 (Version 1)
Quarter: 2022Q4

REPORT INFORMATION
  Report Type: Spontaneous
  Country: US (occurrence: None)
  Receive Date: 20221230
  Receipt Date: 20221230
  Transmission Date: 20230112
  Serious: Yes (Death)
  Sender: FDA-Public Use
  Company Number: None

PATIENT
  Sex: Female

DRUGS (1)
  1. STIVARGA [Suspect]
     Active Substance: REGORAFENIB
     Indication: Gallbladder cancer
     Dosage: FREQUENCY : DAILY;?
     Route: 048
     Dates: start: 20220415, end: 20221229

REACTIONS (1)
  - Death [None]
